FAERS Safety Report 19250906 (Version 2)
Quarter: 2021Q4

REPORT INFORMATION
  Report Type: Spontaneous
  Country: DE (occurrence: DE)
  Receive Date: 20210513
  Receipt Date: 20211008
  Transmission Date: 20220303
  Serious: Yes (Death, Life-Threatening, Hospitalization, Other)
  Sender: FDA-Public Use
  Company Number: DE-EMA-2021426-AUTODUP-1619393285437

PATIENT
  Sex: Female
  Weight: 75 kg

DRUGS (7)
  1. LETROZOLE [Suspect]
     Active Substance: LETROZOLE
     Indication: Breast cancer
     Dosage: 2.5 MILLIGRAM, DAILY, 2.5 MG, QD
     Route: 048
     Dates: start: 20200623
  2. LETROZOLE [Suspect]
     Active Substance: LETROZOLE
     Dosage: 2.5 MILLIGRAM, DAILY, 2.5 MG, QD
     Route: 048
     Dates: start: 20200514, end: 20200622
  3. LETROZOLE [Suspect]
     Active Substance: LETROZOLE
     Indication: Breast cancer
     Dosage: 2.5 MILLIGRAM,QD. DAILY
     Route: 048
     Dates: start: 20200514, end: 20200622
  4. KISQALI [Suspect]
     Active Substance: RIBOCICLIB
     Indication: Breast cancer
     Dosage: 600 MILLIGRAM, DAILY, 600 MG, QD (21 DAYS INTAKE, 7 DAYS PAUSE)
     Route: 048
     Dates: start: 20200514
  5. IBRANCE [Suspect]
     Active Substance: PALBOCICLIB
     Dosage: 125 MG, UNK
     Route: 048
     Dates: start: 20200203, end: 20201002
  6. IBRANCE [Suspect]
     Active Substance: PALBOCICLIB
     Indication: Breast cancer metastatic
  7. DEXAMETHASONE [Concomitant]
     Active Substance: DEXAMETHASONE
     Indication: Dyspnoea
     Dosage: UNK
     Route: 065
     Dates: start: 20201003

REACTIONS (12)
  - General physical health deterioration [Fatal]
  - Gamma-glutamyltransferase increased [Fatal]
  - Leukopenia [Fatal]
  - Dyspnoea [Fatal]
  - Thrombocytopenia [Fatal]
  - Thrombocytopenia [Fatal]
  - Fatigue [Fatal]
  - Neutropenia [Fatal]
  - C-reactive protein increased [Fatal]
  - Anaemia [Fatal]
  - Pneumonia [Fatal]
  - Blood glucose increased [Fatal]

NARRATIVE: CASE EVENT DATE: 20200525
